FAERS Safety Report 9515885 (Version 2)
Quarter: 2014Q1

REPORT INFORMATION
  Report Type: Spontaneous
  Country: US (occurrence: None)
  Receive Date: 20130305
  Receipt Date: 20140306
  Transmission Date: 20141002
  Serious: Yes (Hospitalization)
  Sender: FDA-Public Use
  Company Number: 163-21880-12120935

PATIENT
  Age: 49 Year
  Sex: Female

DRUGS (3)
  1. REVLIMID [Suspect]
     Indication: PLASMA CELL MYELOMA
     Dosage: 19 MG, 28 IN 28 D, PO
     Route: 048
     Dates: start: 20121001, end: 20121022
  2. ALLOPURINOL (ALLOPURINOL) [Suspect]
     Indication: PROPHYLAXIS
     Route: 048
     Dates: start: 20121001, end: 20121022
  3. DECADRON (DEXAMETASONE) [Concomitant]

REACTIONS (2)
  - Blister [None]
  - Stevens-Johnson syndrome [None]
